FAERS Safety Report 9792989 (Version 2)
Quarter: 2014Q1

REPORT INFORMATION
  Report Type: Spontaneous
  Country: HR (occurrence: HR)
  Receive Date: 20140102
  Receipt Date: 20140115
  Transmission Date: 20141002
  Serious: Yes (Disabling)
  Sender: FDA-Public Use
  Company Number: HR-B.I. PHARMACEUTICALS,INC./RIDGEFIELD-2013-BI-44241HR

PATIENT
  Age: 83 Year
  Sex: Female

DRUGS (2)
  1. PRADAXA [Suspect]
     Indication: ATRIAL FIBRILLATION
     Dosage: 220 MG
     Route: 048
     Dates: start: 20130902, end: 20130911
  2. DALNEVA/ PERINDOPRIL ERBUMINE + AMLODIPINE BESILATE [Concomitant]
     Dosage: DOSE OF ONE APPLICATION: DOSAGE FORM
     Route: 048
     Dates: start: 20130620

REACTIONS (8)
  - Fatigue [Recovered/Resolved]
  - Insomnia [Recovered/Resolved]
  - Vertigo [Recovered/Resolved]
  - Skin burning sensation [Recovered/Resolved]
  - Joint swelling [Recovered/Resolved]
  - Asthenia [Recovered/Resolved]
  - Salivary hypersecretion [Recovered/Resolved]
  - Speech disorder [Recovered/Resolved]
